FAERS Safety Report 7438170-3 (Version None)
Quarter: 2011Q2

REPORT INFORMATION
  Report Type: 
  Country: None (occurrence: None)
  Receive Date: 20110426
  Receipt Date: 20101118
  Transmission Date: 20111010
  Serious: Yes (Hospitalization, Other)
  Sender: FDA-Public Use
  Company Number: US-BAYER-201023275NA

PATIENT
  Age: 16 Year
  Sex: Female
  Weight: 54.545 kg

DRUGS (11)
  1. WELLBUTRIN [Concomitant]
     Indication: BIPOLAR DISORDER
  2. OXYCODONE HCL AND ACETAMINOPHEN [Concomitant]
  3. DROSPIRENONE AND ETHINYL ESTRADIOL [Suspect]
     Indication: CONTRACEPTION
     Dosage: 1 TABLET/DAY
     Route: 048
     Dates: start: 20090901, end: 20091001
  4. IBUPROFEN [Concomitant]
     Route: 065
  5. TEGRETOL [Concomitant]
     Route: 065
  6. WELLBUTRIN [Concomitant]
     Indication: DEPRESSION
  7. AMBIEN [Concomitant]
     Indication: INSOMNIA
     Dosage: UNK
     Dates: start: 20070101
  8. ALBUTEROL [Concomitant]
     Route: 055
  9. SYNTHROID [Concomitant]
     Indication: HYPOTHYROIDISM
     Route: 065
     Dates: start: 20070101
  10. LITHIUM [Concomitant]
     Indication: BIPOLAR DISORDER
  11. LORAZEPAM [Concomitant]
     Indication: ANXIETY
     Route: 065
     Dates: start: 20070101

REACTIONS (4)
  - DYSPNOEA [None]
  - INJURY [None]
  - PULMONARY EMBOLISM [None]
  - PAIN [None]
